FAERS Safety Report 7322859-0 (Version None)
Quarter: 2011Q1

REPORT INFORMATION
  Report Type: 
  Country: None (occurrence: None)
  Receive Date: 20110217
  Receipt Date: 20110203
  Transmission Date: 20110831
  Serious: Yes (Other)
  Sender: FDA-Public Use
  Company Number: 1000018821

PATIENT
  Age: 31 Year
  Sex: Female
  Weight: 95 kg

DRUGS (3)
  1. LAMOTRIGINE (LAMOTRIGINE) (TABLETS) (LAMOTRIGINE) [Concomitant]
  2. ESCITALOPRAM OXALATE [Suspect]
     Indication: BORDERLINE PERSONALITY DISORDER
     Dosage: 20 MG (20 MG, 1 IN 1 D), ORAL
     Route: 048
     Dates: end: 20101025
  3. ESCITALOPRAM OXALATE [Suspect]
     Indication: DEPRESSION
     Dosage: 20 MG (20 MG, 1 IN 1 D), ORAL
     Route: 048
     Dates: end: 20101025

REACTIONS (5)
  - DIPLOPIA [None]
  - LIBIDO DECREASED [None]
  - WEIGHT INCREASED [None]
  - FATIGUE [None]
  - FEMALE ORGASMIC DISORDER [None]
